FAERS Safety Report 7041066-2 (Version None)
Quarter: 2010Q4

REPORT INFORMATION
  Report Type: 
  Country: None (occurrence: None)
  Receive Date: 20101013
  Receipt Date: 20101001
  Transmission Date: 20110411
  Serious: Yes (Hospitalization)
  Sender: FDA-Public Use
  Company Number: MX-SANOFI-AVENTIS-2010SA059608

PATIENT
  Age: 58 Year
  Sex: Female
  Weight: 69.6 kg

DRUGS (8)
  1. OXALIPLATIN [Suspect]
     Route: 041
     Dates: start: 20100215, end: 20100215
  2. OXALIPLATIN [Suspect]
     Route: 041
  3. CAPECITABINE [Suspect]
     Route: 048
     Dates: start: 20100215
  4. CAPECITABINE [Suspect]
     Route: 048
  5. BLINDED THERAPY [Concomitant]
     Dates: start: 20100215, end: 20100822
  6. ACETAMINOPHEN [Concomitant]
     Dates: start: 20100101
  7. ONDANSETRON [Concomitant]
     Indication: PROPHYLAXIS
     Dates: start: 20100216, end: 20100308
  8. ONDANSETRON [Concomitant]
     Dates: start: 20100326

REACTIONS (1)
  - PERICARDIAL EFFUSION [None]
